FAERS Safety Report 8361659-X (Version None)
Quarter: 2012Q2

REPORT INFORMATION
  Report Type: 
  Country: None (occurrence: None)
  Receive Date: 20120515
  Receipt Date: 20110520
  Transmission Date: 20120825
  Serious: No
  Sender: FDA-Public Use
  Company Number: US-ABBOTT-11P-163-0804591-00

PATIENT
  Sex: Female

DRUGS (3)
  1. PROGESTERONE [Suspect]
     Indication: PRODUCT USED FOR UNKNOWN INDICATION
     Dosage: DAILY DOSE: 200 MILLIGRAM(S); TAKES FOR 10 DAYS MONTHLY
     Route: 048
     Dates: start: 20090101, end: 20110401
  2. PROGESTERONE [Suspect]
     Dosage: DAILY DOSE: 200 MILLIGRAM(S), BAD BATCH OF MEDICATION.
     Route: 048
     Dates: start: 20110501
  3. ESTROGENS CONJUGATED [Concomitant]
     Indication: PRODUCT USED FOR UNKNOWN INDICATION
     Dosage: DAILY DOSE:  UNKNOWN
     Route: 065

REACTIONS (2)
  - FEELING ABNORMAL [None]
  - DIZZINESS [None]
